FAERS Safety Report 5599398-0 (Version None)
Quarter: 2007Q4

REPORT INFORMATION
  Report Type: 
  Country: None (occurrence: None)
  Receive Date: 20071226
  Receipt Date: 20071127
  Transmission Date: 20080405
  Serious: No
  Sender: FDA-Public Use
  Company Number: 2007PV033767

PATIENT
  Age: 63 Year
  Sex: Female
  Weight: 62.1428 kg

DRUGS (7)
  1. SYMLIN [Suspect]
     Indication: TYPE 2 DIABETES MELLITUS
     Dosage: 60 MCG, TID, SC
     Route: 058
     Dates: start: 20071101
  2. METFORMIN [Concomitant]
  3. INSULIN DETEMIR [Concomitant]
  4. AVANDAMET [Concomitant]
  5. GLUCOVANCE [Concomitant]
  6. ZINC [Concomitant]
  7. PROTONIX [Concomitant]

REACTIONS (3)
  - NAUSEA [None]
  - OEDEMA PERIPHERAL [None]
  - PHARYNGOLARYNGEAL PAIN [None]
